FAERS Safety Report 16310786 (Version 1)
Quarter: 2019Q2

REPORT INFORMATION
  Report Type: Spontaneous
  Country: US (occurrence: US)
  Receive Date: 20190513
  Receipt Date: 20190513
  Transmission Date: 20190711
  Serious: Yes (Hospitalization)
  Sender: FDA-Public Use
  Company Number: None

PATIENT
  Sex: Female

DRUGS (13)
  1. GAS-X [Concomitant]
     Active Substance: DIMETHICONE
  2. METOPROLOL. [Concomitant]
     Active Substance: METOPROLOL
  3. ROPINIROLE. [Concomitant]
     Active Substance: ROPINIROLE
  4. PROTONIX [Concomitant]
     Active Substance: PANTOPRAZOLE SODIUM
  5. LISINOPRIL. [Concomitant]
     Active Substance: LISINOPRIL
  6. SERTRALINE [Concomitant]
     Active Substance: SERTRALINE HYDROCHLORIDE
  7. VITAMIN B12 [Concomitant]
     Active Substance: CYANOCOBALAMIN
  8. ZOSTAVAX [Concomitant]
     Active Substance: VARICELLA-ZOSTER VIRUS STRAIN OKA/MERCK LIVE ANTIGEN
  9. LASIX [Concomitant]
     Active Substance: FUROSEMIDE
  10. LYRICA [Concomitant]
     Active Substance: PREGABALIN
  11. MORPHINE [Concomitant]
     Active Substance: MORPHINE
  12. HUMIRA [Suspect]
     Active Substance: ADALIMUMAB
     Indication: CROHN^S DISEASE
     Dosage: DOSE AMOUNT: 1 UNK?          OTHER FREQUENCY:UNK;?
     Route: 065
  13. ATORVASTATIN [Concomitant]
     Active Substance: ATORVASTATIN

REACTIONS (1)
  - Hospitalisation [None]
